FAERS Safety Report 9525891 (Version 1)
Quarter: 2013Q3

REPORT INFORMATION
  Report Type: Spontaneous
  Country: US (occurrence: None)
  Receive Date: 20130913
  Receipt Date: 20130913
  Transmission Date: 20140515
  Serious: Yes (Hospitalization)
  Sender: FDA-Public Use
  Company Number: None

PATIENT
  Age: 3 Month
  Sex: Male
  Weight: 113 kg

DRUGS (2)
  1. METHOTREXATE [Suspect]
  2. RITUXIMAB (MOAB C2B8 ANTI CD20, CHIMERIC) [Suspect]

REACTIONS (7)
  - Lung infection [None]
  - Thrombocytopenia [None]
  - Neutropenia [None]
  - Sepsis [None]
  - Mental status changes [None]
  - Bacterial infection [None]
  - Localised intraabdominal fluid collection [None]
